FAERS Safety Report 7259917-5 (Version None)
Quarter: 2011Q1

REPORT INFORMATION
  Report Type: 
  Country: None (occurrence: None)
  Receive Date: 20110130
  Receipt Date: 20100917
  Transmission Date: 20110831
  Serious: No
  Sender: FDA-Public Use
  Company Number: US-ABBOTT-10P-163-0671485-00

PATIENT
  Age: 33 Year
  Sex: Female

DRUGS (19)
  1. HUMIRA [Suspect]
     Indication: CROHN'S DISEASE
     Dosage: 160 MG LOADING DOSE
     Dates: start: 20100910, end: 20100910
  2. FOLIC ACID [Concomitant]
     Indication: VITAMIN SUPPLEMENTATION
  3. WELLBUTRIN [Concomitant]
     Indication: EX-TOBACCO USER
     Dosage: DAILY
  4. OXYCODONE [Concomitant]
     Indication: PAIN
  5. ACYCLOVIR [Concomitant]
     Indication: HERPES VIRUS INFECTION
     Dosage: DAILY
  6. AMBIEN [Concomitant]
     Indication: INSOMNIA
     Dosage: BEDTIME
  7. ZOFRAN [Concomitant]
     Indication: NAUSEA
  8. IRON [Concomitant]
     Indication: ANAEMIA
  9. VITAMIN D [Concomitant]
     Indication: PRODUCT USED FOR UNKNOWN INDICATION
  10. IMITREX [Concomitant]
     Indication: MIGRAINE
  11. NEXIUM [Concomitant]
     Indication: GASTROOESOPHAGEAL REFLUX DISEASE
     Dosage: DAILY
  12. HUMIRA [Suspect]
  13. ZOVEREX [Concomitant]
     Indication: HERPES VIRUS INFECTION
     Dosage: 5X DAY
  14. CALCIUM [Concomitant]
     Indication: MINERAL SUPPLEMENTATION
     Dosage: DAILY
  15. LIALDA [Concomitant]
     Indication: CROHN'S DISEASE
     Dosage: 1.25 4 TABS DAILY
  16. VITAMIN B-12 [Concomitant]
     Indication: VITAMIN SUPPLEMENTATION
     Dosage: DAILY
  17. XANAX [Concomitant]
     Indication: ANXIETY
     Dosage: 4 X DAY AS NEEDED
  18. MIRAPEX [Concomitant]
     Indication: RESTLESS LEGS SYNDROME
     Dosage: 0.125 MG BEDTIME
  19. WELLBUTRIN [Concomitant]
     Indication: DEPRESSION

REACTIONS (2)
  - RASH PAPULAR [None]
  - OROPHARYNGEAL PAIN [None]
